FAERS Safety Report 10195357 (Version 2)
Quarter: 2014Q2

REPORT INFORMATION
  Report Type: Spontaneous
  Country: US (occurrence: US)
  Receive Date: 20140526
  Receipt Date: 20140526
  Transmission Date: 20141212
  Serious: Yes (Hospitalization)
  Sender: FDA-Public Use
  Company Number: US-TAKEDA-2014TUS003953

PATIENT
  Age: 64 Year
  Sex: Male
  Weight: 90 kg

DRUGS (5)
  1. ULORIC [Suspect]
     Indication: GOUT
     Dosage: 40 MG, QD
     Route: 048
     Dates: start: 20140314
  2. ULORIC [Suspect]
     Indication: DRUG ERUPTION
     Dosage: UNK, QOD
     Route: 048
     Dates: start: 201404
  3. ACYCLOVIR                          /00587301/ [Concomitant]
     Indication: CHRONIC MYELOMONOCYTIC LEUKAEMIA
     Dosage: 400 MG, BID
     Dates: start: 201401
  4. BACTRIM [Concomitant]
     Indication: CHRONIC MYELOMONOCYTIC LEUKAEMIA
     Dosage: 800/160 MON TO THUS, BID
     Dates: start: 201401
  5. PROGRAF [Concomitant]
     Indication: CHRONIC MYELOMONOCYTIC LEUKAEMIA
     Dosage: 0.5 MG, QD
     Dates: start: 201401

REACTIONS (1)
  - Hyperkalaemia [Recovered/Resolved]
